FAERS Safety Report 21006474 (Version 1)
Quarter: 2022Q2

REPORT INFORMATION
  Report Type: Spontaneous
  Country: US (occurrence: US)
  Receive Date: 20220624
  Receipt Date: 20220624
  Transmission Date: 20220720
  Serious: Yes (Other)
  Sender: FDA-Public Use
  Company Number: US-GILEAD-2022-0586933

PATIENT
  Age: 54 Year
  Sex: Male
  Weight: 100.9 kg

DRUGS (1)
  1. YESCARTA [Suspect]
     Active Substance: AXICABTAGENE CILOLEUCEL
     Indication: Diffuse large B-cell lymphoma
     Dosage: UNK
     Route: 042
     Dates: start: 20220406

REACTIONS (15)
  - Immune effector cell-associated neurotoxicity syndrome [Unknown]
  - Cytokine release syndrome [Unknown]
  - Neurotoxicity [Unknown]
  - Confusional state [Unknown]
  - Memory impairment [Unknown]
  - Agitation [Unknown]
  - Pyrexia [Unknown]
  - Fatigue [Unknown]
  - Tachycardia [Unknown]
  - Chills [Unknown]
  - Diarrhoea [Unknown]
  - Hypoalbuminaemia [Unknown]
  - Decreased appetite [Unknown]
  - Aphasia [Unknown]
  - Tremor [Unknown]

NARRATIVE: CASE EVENT DATE: 20220407
